FAERS Safety Report 24654459 (Version 1)
Quarter: 2024Q4

REPORT INFORMATION
  Report Type: Spontaneous
  Country: CN (occurrence: CN)
  Receive Date: 20241122
  Receipt Date: 20241122
  Transmission Date: 20250115
  Serious: Yes (Hospitalization)
  Sender: BAYER HEALTHCARE PHARMACEUTICALS INC.
  Company Number: CN-BAYER-2024A165723

PATIENT
  Age: 61 Year
  Sex: Male

DRUGS (2)
  1. STIVARGA [Suspect]
     Active Substance: REGORAFENIB MONOHYDRATE
     Indication: Hepatic neoplasm
     Dosage: UNK
     Route: 048
  2. STIVARGA [Suspect]
     Active Substance: REGORAFENIB MONOHYDRATE
     Indication: Hepatic neoplasm
     Dosage: 160 MG, QD
     Route: 048
     Dates: start: 20241101, end: 20241113

REACTIONS (7)
  - Scrotal erythema [Recovering/Resolving]
  - Scrotum erosion [Recovering/Resolving]
  - Effusion [Recovering/Resolving]
  - Erythema [Recovering/Resolving]
  - Blister [Recovering/Resolving]
  - Pain of skin [Recovering/Resolving]
  - Drug hypersensitivity [Recovered/Resolved]

NARRATIVE: CASE EVENT DATE: 20241111
